FAERS Safety Report 7502134-1 (Version None)
Quarter: 2011Q2

REPORT INFORMATION
  Report Type: 
  Country: None (occurrence: None)
  Receive Date: 20110525
  Receipt Date: 20110516
  Transmission Date: 20111010
  Serious: Yes (Death, Hospitalization, Congenital Anomaly, Other)
  Sender: FDA-Public Use
  Company Number: US-PFIZER INC-2011105818

PATIENT
  Sex: Male
  Weight: 1.5 kg

DRUGS (5)
  1. EFFEXOR [Suspect]
     Dosage: UNK
     Route: 064
  2. ZOLOFT [Concomitant]
     Dosage: UNK
     Route: 064
  3. FAMOTIDINE [Concomitant]
     Dosage: UNK
     Route: 064
  4. PRENATAL VITAMINS [Concomitant]
     Dosage: DAILY ONE
     Route: 064
  5. ZOLPIDEM [Concomitant]
     Dosage: UNK
     Route: 064

REACTIONS (17)
  - DRUG EXPOSURE DURING PREGNANCY [None]
  - PATENT DUCTUS ARTERIOSUS [None]
  - PULMONARY HYPERTENSION [None]
  - NEONATAL RESPIRATORY DISTRESS SYNDROME [None]
  - INTRAVENTRICULAR HAEMORRHAGE NEONATAL [None]
  - PNEUMOTHORAX [None]
  - PULMONARY HYPOPLASIA [None]
  - PERIPHERAL CIRCULATORY FAILURE [None]
  - SEPSIS NEONATAL [None]
  - RETINOPATHY OF PREMATURITY [None]
  - KIDNEY MALFORMATION [None]
  - APNOEA [None]
  - EXTREMITY CONTRACTURE [None]
  - HYPOTENSION [None]
  - BRADYCARDIA NEONATAL [None]
  - TRICUSPID VALVE INCOMPETENCE [None]
  - ATRIAL SEPTAL DEFECT [None]
